FAERS Safety Report 13847951 (Version 1)
Quarter: 2017Q3

REPORT INFORMATION
  Report Type: Spontaneous
  Country: US (occurrence: US)
  Receive Date: 20170808
  Receipt Date: 20170808
  Transmission Date: 20171127
  Serious: Yes (Other)
  Sender: FDA-Public Use
  Company Number: None

PATIENT
  Age: 51 Year
  Sex: Female
  Weight: 99 kg

DRUGS (9)
  1. MULTI VITAMIN [Concomitant]
     Active Substance: VITAMINS
  2. CONTRAVE [Suspect]
     Active Substance: BUPROPION HYDROCHLORIDE\NALTREXONE HYDROCHLORIDE
     Indication: WEIGHT DECREASED
     Dosage: ?          QUANTITY:2 TABLET(S);?TWICE A DAY ORAL
     Route: 048
     Dates: start: 20170718
  3. VICTOZA [Concomitant]
     Active Substance: LIRAGLUTIDE
  4. LASIX [Concomitant]
     Active Substance: FUROSEMIDE
  5. POTASSIUM [Concomitant]
     Active Substance: POTASSIUM
  6. CALCIUM CITRATE [Concomitant]
     Active Substance: CALCIUM CITRATE
  7. LANTUS [Concomitant]
     Active Substance: INSULIN GLARGINE
  8. METROPOLOL [Concomitant]
     Active Substance: METOPROLOL
  9. LOSARTAN. [Concomitant]
     Active Substance: LOSARTAN

REACTIONS (2)
  - Nasal congestion [None]
  - Epistaxis [None]

NARRATIVE: CASE EVENT DATE: 20170808
